FAERS Safety Report 8256185-2 (Version None)
Quarter: 2012Q2

REPORT INFORMATION
  Report Type: 
  Country: None (occurrence: None)
  Receive Date: 20120403
  Receipt Date: 20120328
  Transmission Date: 20120825
  Serious: Yes (Other)
  Sender: FDA-Public Use
  Company Number: US-PFIZER INC-2012080235

PATIENT
  Sex: Female
  Weight: 57 kg

DRUGS (2)
  1. GABAPENTIN [Suspect]
     Dosage: 300 MG, 1X/DAY
     Route: 048
  2. GABAPENTIN [Suspect]
     Indication: NEUROPATHY PERIPHERAL
     Dosage: 100 MG, 3X/DAY
     Route: 048

REACTIONS (7)
  - COUGH [None]
  - CAPSULE PHYSICAL ISSUE [None]
  - CHOKING [None]
  - DYSPNOEA [None]
  - PRURITUS [None]
  - DYSGEUSIA [None]
  - STRESS [None]
